FAERS Safety Report 5277172-2 (Version None)
Quarter: 2007Q1

REPORT INFORMATION
  Report Type: 
  Country: None (occurrence: None)
  Receive Date: 20070322
  Receipt Date: 20070322
  Transmission Date: 20070707
  Serious: Yes (Hospitalization)
  Sender: FDA-Public Use
  Company Number: None

PATIENT
  Sex: Male
  Weight: 158.3 kg

DRUGS (16)
  1. SULFAMETHOXAZOLE AND TRIMETHOPRIM [Suspect]
     Indication: ABSCESS
     Dosage: 1 TABLET TWICE DAILY PO
     Route: 048
     Dates: start: 20070123, end: 20070208
  2. SULFAMETHOXAZOLE AND TRIMETHOPRIM [Suspect]
     Indication: STAPHYLOCOCCAL INFECTION
     Dosage: 1 TABLET TWICE DAILY PO
     Route: 048
     Dates: start: 20070123, end: 20070208
  3. LISINOPRIL [Suspect]
     Indication: HYPERTENSION
     Dosage: 1 TABLET AM AND 1/2 TAB PM PO
     Route: 048
     Dates: start: 20060522, end: 20070208
  4. ALLOPURINOL [Concomitant]
  5. ASPIRIN [Concomitant]
  6. GEMFIBROZIL [Concomitant]
  7. GLYBURIDE [Concomitant]
  8. HYDROCHLOROTHIAZIDE [Concomitant]
  9. LISINOPRIL [Concomitant]
  10. METFORMIN HCL [Concomitant]
  11. METOPROLOL TARTRATE [Concomitant]
  12. OXYBUTYNIN CHLORIDE [Concomitant]
  13. OXYCODONE/ACETAMINOPHEN [Concomitant]
  14. RANITIDINE HCL [Concomitant]
  15. SERTRALINE HCL [Concomitant]
  16. SIMVASTATIN [Concomitant]

REACTIONS (8)
  - ASTHENIA [None]
  - HYPERKALAEMIA [None]
  - HYPOTENSION [None]
  - MUCOSAL DRYNESS [None]
  - NAUSEA [None]
  - NEPHRITIS INTERSTITIAL [None]
  - RENAL FAILURE ACUTE [None]
  - RENAL TUBULAR NECROSIS [None]
